FAERS Safety Report 20507080 (Version 2)
Quarter: 2022Q2

REPORT INFORMATION
  Report Type: Spontaneous
  Country: US (occurrence: None)
  Receive Date: 20220223
  Receipt Date: 20220526
  Transmission Date: 20220720
  Serious: Yes (Other)
  Sender: FDA-Public Use
  Company Number: US-ROCHE-3028203

PATIENT
  Age: 20 Year
  Sex: Female

DRUGS (2)
  1. OCREVUS [Suspect]
     Active Substance: OCRELIZUMAB
     Indication: Multiple sclerosis
     Dosage: STRENGHT: 300MG/10ML
     Route: 042
     Dates: start: 20210830
  2. OCREVUS [Suspect]
     Active Substance: OCRELIZUMAB
     Route: 042
     Dates: start: 20210819

REACTIONS (3)
  - Multiple sclerosis relapse [Unknown]
  - Product dose omission issue [Unknown]
  - Vertigo [Unknown]

NARRATIVE: CASE EVENT DATE: 20220101
